FAERS Safety Report 19760186 (Version 1)
Quarter: 2021Q3

REPORT INFORMATION
  Report Type: Spontaneous
  Country: JP (occurrence: JP)
  Receive Date: 20210830
  Receipt Date: 20210830
  Transmission Date: 20211014
  Serious: Yes (Hospitalization)
  Sender: FDA-Public Use
  Company Number: JP-BIOVITRUM-2021JP7746

PATIENT
  Age: 1 Year

DRUGS (1)
  1. SYNAGIS [Suspect]
     Active Substance: PALIVIZUMAB
     Indication: ANTIVIRAL PROPHYLAXIS
     Dosage: A TOTAL OF SIX TIMES, THROUGHOUT THE RSV SEASON
     Route: 030

REACTIONS (1)
  - Respiratory syncytial virus infection [Unknown]
